FAERS Safety Report 8495953-9 (Version None)
Quarter: 2012Q3

REPORT INFORMATION
  Report Type: 
  Country: None (occurrence: None)
  Receive Date: 20120709
  Receipt Date: 20120629
  Transmission Date: 20120928
  Serious: Yes (Other)
  Sender: FDA-Public Use
  Company Number: US-GLAXOSMITHKLINE-A0983543A

PATIENT
  Sex: Male
  Weight: 80 kg

DRUGS (11)
  1. FUROSEMIDE [Concomitant]
     Route: 048
  2. FENTANYL [Concomitant]
  3. SPIRONOLACTONE [Concomitant]
     Route: 050
  4. PROMACTA [Suspect]
     Indication: PRODUCT USED FOR UNKNOWN INDICATION
     Dosage: 25MG PER DAY
     Route: 048
  5. MORPHINE SULFATE [Concomitant]
     Route: 048
  6. DOCULASE [Concomitant]
     Route: 048
  7. LACTULOSE [Concomitant]
  8. FLUOXETINE [Concomitant]
     Route: 048
  9. PROPRANOLOL [Concomitant]
     Route: 048
  10. PANCREASE [Concomitant]
     Route: 048
  11. PROMETHAZINE [Concomitant]
     Route: 048

REACTIONS (6)
  - PLATELET COUNT DECREASED [None]
  - LOSS OF CONSCIOUSNESS [None]
  - FATIGUE [None]
  - HEPATIC PAIN [None]
  - ABDOMINAL PAIN [None]
  - APHAGIA [None]
